FAERS Safety Report 20324526 (Version 2)
Quarter: 2022Q1

REPORT INFORMATION
  Report Type: Spontaneous
  Country: IT (occurrence: None)
  Receive Date: 20220111
  Receipt Date: 20220113
  Transmission Date: 20220423
  Serious: Yes (Other)
  Sender: FDA-Public Use
  Company Number: IT-US-Provell Pharmaceuticals LLC-9291228

PATIENT
  Sex: Female

DRUGS (1)
  1. EUTHYROX [Suspect]
     Active Substance: LEVOTHYROXINE SODIUM
     Indication: Product used for unknown indication
     Dosage: 50 MCG 6 DAYS A WEEK AND 25 MCG (HALF A 50MCG TABLET) 1 DAY A WEEK.
     Route: 048
     Dates: start: 20211225

REACTIONS (1)
  - Dysentery [Unknown]

NARRATIVE: CASE EVENT DATE: 20211225
